FAERS Safety Report 15758923 (Version 2)
Quarter: 2019Q1

REPORT INFORMATION
  Report Type: Spontaneous
  Country: DK (occurrence: DK)
  Receive Date: 20181225
  Receipt Date: 20190115
  Transmission Date: 20190417
  Serious: Yes (Other)
  Sender: FDA-Public Use
  Company Number: DK-BAXTER-2018BAX030582

PATIENT
  Age: 27 Year
  Sex: Female

DRUGS (5)
  1. DOXORUBICIN [Suspect]
     Active Substance: DOXORUBICIN
     Indication: EWING^S SARCOMA
     Dosage: RECEIVED FOR SIX SERIES
     Route: 065
  2. ACTINOMYCIN D [Suspect]
     Active Substance: DACTINOMYCIN
     Indication: EWING^S SARCOMA
     Dosage: RECEIVED FOR THREE SERIES
     Route: 065
  3. VINCRISTIN [Suspect]
     Active Substance: VINCRISTINE
     Indication: EWING^S SARCOMA
     Dosage: RECEIVED FOR SIX SERIES FOLLOWED BY ADDITIONAL THREE SERIES
     Route: 065
  4. ETHOPOSI [ETOPOSIDE] [Suspect]
     Active Substance: ETOPOSIDE
     Indication: EWING^S SARCOMA
     Dosage: RECEIVED FOR SIX SERIES
     Route: 065
  5. HOLOXAN [Suspect]
     Active Substance: IFOSFAMIDE
     Indication: EWING^S SARCOMA
     Dosage: RECEIVED FOR SIX SERIES FOLLOWED BY ADDITIONAL THREE SERIES
     Route: 065

REACTIONS (4)
  - Amenorrhoea [Not Recovered/Not Resolved]
  - Hot flush [Unknown]
  - Menopause [Unknown]
  - Gonadotrophin deficiency [Not Recovered/Not Resolved]
